APPROVED DRUG PRODUCT: ZENATANE
Active Ingredient: ISOTRETINOIN
Strength: 40MG
Dosage Form/Route: CAPSULE;ORAL
Application: A202099 | Product #003 | TE Code: AB1
Applicant: DR REDDYS LABORATORIES LTD
Approved: Mar 25, 2013 | RLD: No | RS: No | Type: RX